FAERS Safety Report 19436810 (Version 1)
Quarter: 2021Q2

REPORT INFORMATION
  Report Type: Spontaneous
  Country: US (occurrence: US)
  Receive Date: 20210618
  Receipt Date: 20210618
  Transmission Date: 20210717
  Serious: No
  Sender: FDA-Public Use
  Company Number: US-VIIV HEALTHCARE LIMITED-US2021125149

PATIENT

DRUGS (1)
  1. DOVATO [Suspect]
     Active Substance: DOLUTEGRAVIR SODIUM\LAMIVUDINE
     Indication: PRODUCT USED FOR UNKNOWN INDICATION
     Dosage: UNK UNK, QD 50/300
     Route: 048

REACTIONS (3)
  - CD4 lymphocytes decreased [Recovering/Resolving]
  - Decreased immune responsiveness [Recovering/Resolving]
  - White blood cell count decreased [Recovering/Resolving]
